FAERS Safety Report 4722323-9 (Version None)
Quarter: 2005Q3

REPORT INFORMATION
  Report Type: 
  Country: None (occurrence: None)
  Receive Date: 20050722
  Receipt Date: 20050218
  Transmission Date: 20060218
  Serious: No
  Sender: FDA-Public Use
  Company Number: US-GLAXOSMITHKLINE-A0546321A

PATIENT
  Age: 44 Year
  Sex: Female

DRUGS (4)
  1. AVANDIA [Suspect]
     Dosage: 4MG PER DAY
     Route: 048
     Dates: start: 20040901
  2. GLUCOPHAGE XR [Concomitant]
  3. AMARYL [Concomitant]
  4. VITAMIN E [Concomitant]

REACTIONS (2)
  - ILL-DEFINED DISORDER [None]
  - VIRAL INFECTION [None]
